FAERS Safety Report 6125721-4 (Version None)
Quarter: 2009Q1

REPORT INFORMATION
  Report Type: 
  Country: None (occurrence: None)
  Receive Date: 20090319
  Receipt Date: 20090319
  Transmission Date: 20090719
  Serious: Yes (Other)
  Sender: FDA-Public Use
  Company Number: None

PATIENT
  Sex: Male
  Weight: 50 kg

DRUGS (1)
  1. ANCEF [Suspect]
     Dates: start: 20090104, end: 20090104

REACTIONS (5)
  - CONVULSION [None]
  - DYSKINESIA [None]
  - PRURITUS [None]
  - RASH [None]
  - TREMOR [None]
